FAERS Safety Report 9335185 (Version 1)
Quarter: 2013Q2

REPORT INFORMATION
  Report Type: Spontaneous
  Country: FR (occurrence: FR)
  Receive Date: 20130606
  Receipt Date: 20130606
  Transmission Date: 20140414
  Serious: Yes (Hospitalization)
  Sender: FDA-Public Use
  Company Number: FR-GLAXOSMITHKLINE-B0894960A

PATIENT
  Age: 39 Year
  Sex: Male

DRUGS (8)
  1. DEROXAT [Suspect]
     Indication: PRODUCT USED FOR UNKNOWN INDICATION
     Route: 048
  2. SERETIDE [Suspect]
     Indication: PRODUCT USED FOR UNKNOWN INDICATION
     Route: 055
  3. VENTOLINE [Suspect]
     Indication: PRODUCT USED FOR UNKNOWN INDICATION
     Route: 055
  4. DEPAMIDE [Suspect]
     Indication: BIPOLAR DISORDER
     Dosage: 6UNIT PER DAY
     Route: 048
     Dates: start: 2006
  5. THERALENE [Suspect]
     Indication: PRODUCT USED FOR UNKNOWN INDICATION
     Dosage: 50DROP PER DAY
     Route: 065
  6. TERCIAN [Suspect]
     Indication: PRODUCT USED FOR UNKNOWN INDICATION
     Route: 048
  7. RISPERDAL [Suspect]
     Indication: PRODUCT USED FOR UNKNOWN INDICATION
     Route: 048
  8. ATARAX [Suspect]
     Indication: PRODUCT USED FOR UNKNOWN INDICATION
     Dosage: 1UNIT PER DAY
     Route: 048

REACTIONS (2)
  - Pleurisy [Unknown]
  - Disease recurrence [Unknown]
